FAERS Safety Report 5215060-8 (Version None)
Quarter: 2007Q1

REPORT INFORMATION
  Report Type: 
  Country: None (occurrence: None)
  Receive Date: 20070122
  Receipt Date: 20070110
  Transmission Date: 20070707
  Serious: Yes (Hospitalization)
  Sender: FDA-Public Use
  Company Number: JP-MERCK-0612USA03217

PATIENT
  Age: 81 Year
  Sex: Female
  Weight: 50 kg

DRUGS (10)
  1. ZOCOR [Suspect]
     Indication: HYPERLIPIDAEMIA
     Route: 048
     Dates: end: 20061211
  2. MICONAZOLE [Suspect]
     Indication: ORAL CANDIDIASIS
     Route: 061
     Dates: start: 20061030, end: 20061103
  3. MICONAZOLE [Suspect]
     Route: 061
     Dates: start: 20061114, end: 20061118
  4. MICONAZOLE [Suspect]
     Route: 061
     Dates: start: 20061204, end: 20061210
  5. ASPIRIN [Concomitant]
     Route: 048
  6. DILTIAZEM HYDROCHLORIDE [Concomitant]
     Route: 048
  7. DOXAZOSIN MESYLATE [Concomitant]
     Route: 048
  8. VALSARTAN [Concomitant]
     Route: 048
  9. SUNRYTHM [Concomitant]
     Route: 048
  10. ISOSORBIDE MONONITRATE [Concomitant]
     Route: 048

REACTIONS (2)
  - HEPATIC FUNCTION ABNORMAL [None]
  - ORAL CANDIDIASIS [None]
